FAERS Safety Report 7717035-3 (Version None)
Quarter: 2011Q3

REPORT INFORMATION
  Report Type: 
  Country: None (occurrence: None)
  Receive Date: 20110829
  Receipt Date: 20110819
  Transmission Date: 20111222
  Serious: Yes (Other)
  Sender: FDA-Public Use
  Company Number: US-AMGEN-USASP2011042597

PATIENT
  Sex: Female

DRUGS (3)
  1. ENBREL [Suspect]
     Indication: PSORIASIS
     Dosage: 25 MG, 2 TIMES/WK
     Dates: start: 19981101
  2. ENBREL [Suspect]
     Indication: PSORIATIC ARTHROPATHY
  3. INSULIN [Concomitant]
     Indication: DIABETES MELLITUS
     Dosage: UNK

REACTIONS (17)
  - PULMONARY MASS [None]
  - WEIGHT INCREASED [None]
  - PSORIATIC ARTHROPATHY [None]
  - PAPULE [None]
  - HEADACHE [None]
  - DYSPNOEA [None]
  - DIZZINESS [None]
  - DRY EYE [None]
  - GAIT DISTURBANCE [None]
  - SCAB [None]
  - GLIOMA [None]
  - LIVER DISORDER [None]
  - VISUAL IMPAIRMENT [None]
  - PARAESTHESIA [None]
  - FATIGUE [None]
  - TYPE 1 DIABETES MELLITUS [None]
  - PRURITUS [None]
